FAERS Safety Report 19097498 (Version 3)
Quarter: 2024Q3

REPORT INFORMATION
  Report Type: Report from Study
  Country: FR (occurrence: FR)
  Receive Date: 20210406
  Receipt Date: 20240812
  Transmission Date: 20241016
  Serious: Yes (Death)
  Sender: ROCHE
  Company Number: FR-SEATTLE GENETICS-2021SGN01664

PATIENT
  Age: 51 Year
  Sex: Female

DRUGS (3)
  1. TRASTUZUMAB [Suspect]
     Active Substance: TRASTUZUMAB
     Indication: HER2 positive breast cancer
     Dosage: UNK
     Route: 058
     Dates: start: 20201126, end: 20210218
  2. CAPECITABINE [Suspect]
     Active Substance: CAPECITABINE
     Indication: HER2 positive breast cancer
     Dosage: ^1250^ TWICE DAILY ON DAYS 1 THROUGH 14 OF EACH 21-DAY CYCLE
     Route: 048
     Dates: start: 20201126, end: 20210303
  3. TUCATINIB [Suspect]
     Active Substance: TUCATINIB
     Indication: HER2 positive breast cancer
     Dosage: MOST RECENT DOSE RECEIVED ON 03/MAR/2021?300 MG, 2X/DAY 21-DAY TREATMENT CYCLE
     Route: 065
     Dates: start: 20201126, end: 20210303

REACTIONS (2)
  - Epilepsy [Fatal]
  - Disease progression [Fatal]

NARRATIVE: CASE EVENT DATE: 20210310
